FAERS Safety Report 18595181 (Version 5)
Quarter: 2021Q1

REPORT INFORMATION
  Report Type: Report from Study
  Country: JP (occurrence: JP)
  Receive Date: 20201209
  Receipt Date: 20210129
  Transmission Date: 20210419
  Serious: Yes (Hospitalization)
  Sender: FDA-Public Use
  Company Number: JP-ROCHE-2726468

PATIENT
  Age: 42 Year
  Sex: Female
  Weight: 71 kg

DRUGS (24)
  1. MUCOSTA [Concomitant]
     Active Substance: REBAMIPIDE
     Indication: DRY EYE
  2. HYALEIN [Concomitant]
     Active Substance: HYALURONATE SODIUM
     Indication: DRY EYE
  3. SOFT SANTEAR [Concomitant]
     Indication: DRY EYE
  4. CALONAL [Concomitant]
     Active Substance: ACETAMINOPHEN
     Indication: BACK PAIN
     Route: 048
     Dates: start: 20201108, end: 20201109
  5. CALONAL [Concomitant]
     Active Substance: ACETAMINOPHEN
     Indication: HEADACHE
     Route: 048
     Dates: start: 20201113, end: 20201113
  6. LOXOPROFEN [Concomitant]
     Active Substance: LOXOPROFEN
     Route: 048
     Dates: start: 20201116, end: 20201117
  7. HYALEIN [Concomitant]
     Active Substance: HYALURONATE SODIUM
     Indication: PUNCTATE KERATITIS
     Route: 047
     Dates: start: 20200722
  8. TEPRENONE [Concomitant]
     Active Substance: TEPRENONE
     Indication: GASTRITIS
     Route: 048
     Dates: start: 20201114, end: 20201114
  9. PLACEBO [Suspect]
     Active Substance: UNSPECIFIED INGREDIENT
     Indication: TRIPLE NEGATIVE BREAST CANCER
     Dosage: START DATE OF MOST RECENT DOSE OF STUDY DRUG PRIOR TO AE 12?AUG?2020
     Route: 048
     Dates: start: 20200421
  10. CALONAL [Concomitant]
     Active Substance: ACETAMINOPHEN
     Route: 048
     Dates: start: 20201119, end: 20201123
  11. LOXOPROFEN [Concomitant]
     Active Substance: LOXOPROFEN
     Route: 048
     Dates: start: 20201115, end: 20201115
  12. FAMOTIDINE. [Concomitant]
     Active Substance: FAMOTIDINE
     Route: 042
     Dates: start: 20200421
  13. ACUATIM [Concomitant]
     Active Substance: NADIFLOXACIN
     Indication: RASH
     Route: 061
     Dates: start: 20200610
  14. MUCOSTA [Concomitant]
     Active Substance: REBAMIPIDE
     Indication: PUNCTATE KERATITIS
     Route: 047
     Dates: start: 20200722
  15. TEPRENONE [Concomitant]
     Active Substance: TEPRENONE
     Route: 048
     Dates: start: 20201115, end: 20201115
  16. PACLITAXEL. [Suspect]
     Active Substance: PACLITAXEL
     Indication: TRIPLE NEGATIVE BREAST CANCER
     Dosage: START DATE OF MOST RECENT DOSE OF STUDY DRUG (80 MG/M2) PRIOR TO SAE 17/NOV/2020 AT 2:30 PM AND ENDE
     Route: 042
     Dates: start: 20200421
  17. CALONAL [Concomitant]
     Active Substance: ACETAMINOPHEN
     Route: 048
     Dates: start: 20201202, end: 20201202
  18. TEPRENONE [Concomitant]
     Active Substance: TEPRENONE
     Route: 048
     Dates: start: 20201116, end: 20201117
  19. ATEZOLIZUMAB. [Suspect]
     Active Substance: ATEZOLIZUMAB
     Indication: TRIPLE NEGATIVE BREAST CANCER
     Dosage: START DATE OF MOST RECENT DOSE OF STUDY DRUG PRIOR TO AE 23?SEP?2020 2:35 PM?END DATE OF MOST RECENT
     Route: 041
     Dates: start: 20200421
  20. D?CHLORPHENIRAMINE MALEATE [Concomitant]
     Active Substance: DEXCHLORPHENIRAMINE MALEATE
     Route: 042
     Dates: start: 20200421
  21. SOFT SANTEAR [Concomitant]
     Indication: PUNCTATE KERATITIS
     Route: 047
     Dates: start: 20200722
  22. DEXAMETHASONE SODIUM PHOSPHATE. [Concomitant]
     Active Substance: DEXAMETHASONE SODIUM PHOSPHATE
     Route: 042
     Dates: start: 20200421
  23. LOXOPROFEN [Concomitant]
     Active Substance: LOXOPROFEN
     Indication: HEADACHE
     Route: 048
     Dates: start: 20201114, end: 20201114
  24. FAMOTIDINE OD [Concomitant]
     Active Substance: FAMOTIDINE
     Indication: GASTRITIS
     Route: 048
     Dates: start: 20201202, end: 20201223

REACTIONS (2)
  - Facial paralysis [Recovered/Resolved]
  - Transient ischaemic attack [Recovered/Resolved]

NARRATIVE: CASE EVENT DATE: 20201129
